FAERS Safety Report 23600375 (Version 3)
Quarter: 2024Q4

REPORT INFORMATION
  Report Type: Spontaneous
  Country: CA (occurrence: CA)
  Receive Date: 20240306
  Receipt Date: 20241205
  Transmission Date: 20250114
  Serious: Yes (Other)
  Sender: PFIZER
  Company Number: CA-PFIZER INC-202201176076

PATIENT
  Age: 42 Year
  Sex: Female

DRUGS (2)
  1. ABRILADA [Suspect]
     Active Substance: ADALIMUMAB-AFZB
     Indication: Crohn^s disease
     Dosage: 40 MG EVERY 2 WEEKS
     Route: 058
     Dates: start: 20220617, end: 20240209
  2. ABRILADA [Suspect]
     Active Substance: ADALIMUMAB-AFZB
     Dosage: 40 MG, WEEKLY
     Route: 058

REACTIONS (11)
  - Intestinal anastomosis [Unknown]
  - Anastomotic ulcer [Not Recovered/Not Resolved]
  - Dyschezia [Unknown]
  - Infrequent bowel movements [Unknown]
  - Abdominal distension [Unknown]
  - Stress [Unknown]
  - Condition aggravated [Recovering/Resolving]
  - Arthralgia [Recovered/Resolved]
  - Aphthous ulcer [Recovering/Resolving]
  - Anal fissure [Recovering/Resolving]
  - Off label use [Unknown]

NARRATIVE: CASE EVENT DATE: 20220617
